FAERS Safety Report 7588836-X (Version None)
Quarter: 2011Q3

REPORT INFORMATION
  Report Type: 
  Country: None (occurrence: None)
  Receive Date: 20110705
  Receipt Date: 20110628
  Transmission Date: 20111222
  Serious: No
  Sender: FDA-Public Use
  Company Number: US-JNJFOC-20110700200

PATIENT
  Sex: Female
  Weight: 63.05 kg

DRUGS (6)
  1. NORCO [Concomitant]
     Indication: PAIN
     Route: 065
  2. DURAGESIC-100 [Suspect]
     Indication: PAIN
     Route: 062
     Dates: start: 20110101
  3. XANAX [Concomitant]
     Indication: ANXIETY
     Route: 048
  4. NAPROXEN [Concomitant]
     Indication: PAIN
     Route: 048
  5. DURAGESIC-100 [Suspect]
     Route: 062
     Dates: start: 20110101
  6. ROBAXIN [Concomitant]
     Indication: MUSCLE SPASMS
     Route: 048

REACTIONS (4)
  - WRONG TECHNIQUE IN DRUG USAGE PROCESS [None]
  - PRODUCT ADHESION ISSUE [None]
  - PAIN [None]
  - ARTHRALGIA [None]
